FAERS Safety Report 4907040-4 (Version None)
Quarter: 2006Q2

REPORT INFORMATION
  Report Type: 
  Country: None (occurrence: None)
  Receive Date: 20060207
  Receipt Date: 20060119
  Transmission Date: 20061013
  Serious: Yes (Hospitalization, Disabling, Other)
  Sender: FDA-Public Use
  Company Number: US97014300A

PATIENT
  Age: 51 Year
  Sex: Male
  Weight: 70 kg

DRUGS (13)
  1. HUMALOG [Suspect]
     Indication: DIABETES MELLITUS
     Dosage: 20 U, DAILY (1/D), SUBCUTANEOUS; AS NEEDED
     Route: 058
     Dates: start: 19960101
  2. HUMULIN L [Suspect]
     Indication: DIABETES MELLITUS
     Dosage: 7 U, DAILY (1/D), SUBCUTANEOUS
     Route: 058
  3. HUMULIN N [Suspect]
     Indication: DIABETES MELLITUS
     Dates: start: 19950101, end: 19960101
  4. HUMULIN R [Suspect]
     Indication: DIABETES MELLITUS
     Dates: start: 19950101, end: 19960101
  5. INSULIN(INSULIN, ANIMAL) [Suspect]
     Indication: DIABETES MELLITUS
     Dates: start: 19950101
  6. CARDIZEM CD [Concomitant]
  7. ASPIRIN [Concomitant]
  8. ZOCOR [Concomitant]
  9. HALCION [Concomitant]
  10. NORTRIPTYLINE (NORTRIPTYLINE) [Concomitant]
  11. NOVOLIN R [Concomitant]
  12. ISOSORBIDE (ISOSORBIDE) [Concomitant]
  13. NOVOLOG [Concomitant]

REACTIONS (21)
  - BLINDNESS [None]
  - BLOOD GLUCOSE INCREASED [None]
  - BRUXISM [None]
  - DECREASED APPETITE [None]
  - ELECTROCARDIOGRAM ABNORMAL [None]
  - EYE DISORDER [None]
  - FALL [None]
  - FEAR [None]
  - FOAMING AT MOUTH [None]
  - HYPERHIDROSIS [None]
  - HYPOGLYCAEMIA UNAWARENESS [None]
  - LOSS OF CONSCIOUSNESS [None]
  - MACULAR DEGENERATION [None]
  - MYOCARDIAL INFARCTION [None]
  - OVERDOSE [None]
  - POOR QUALITY DRUG ADMINISTERED [None]
  - RETINAL DEGENERATION [None]
  - SCREAMING [None]
  - SHOCK HYPOGLYCAEMIC [None]
  - VISION BLURRED [None]
  - VISUAL ACUITY REDUCED [None]
